FAERS Safety Report 6912273-1 (Version None)
Quarter: 2010Q3

REPORT INFORMATION
  Report Type: 
  Country: None (occurrence: None)
  Receive Date: 20100806
  Receipt Date: 20080516
  Transmission Date: 20110219
  Serious: No
  Sender: FDA-Public Use
  Company Number: US-PFIZER INC-2008025261

PATIENT
  Age: 64 Year
  Sex: Female

DRUGS (8)
  1. GLIPIZIDE [Suspect]
     Indication: TYPE 2 DIABETES MELLITUS
  2. METFORMIN HCL [Concomitant]
  3. VERAPAMIL [Concomitant]
  4. DRUG, UNSPECIFIED [Concomitant]
  5. PREDNISONE [Concomitant]
  6. TRAMADOL HYDROCHLORIDE [Concomitant]
  7. PRAVASTATIN [Concomitant]
  8. DOXEPIN HCL [Concomitant]

REACTIONS (1)
  - UNEVALUABLE EVENT [None]
